FAERS Safety Report 23184886 (Version 1)
Quarter: 2023Q4

REPORT INFORMATION
  Report Type: Spontaneous
  Country: ID (occurrence: ID)
  Receive Date: 20231115
  Receipt Date: 20231115
  Transmission Date: 20240110
  Serious: Yes (Other)
  Sender: FDA-Public Use
  Company Number: ID-NOVITIUMPHARMA-2023IDNVP01937

PATIENT
  Age: 9 Year
  Sex: Female

DRUGS (1)
  1. DEXAMETHASONE [Suspect]
     Active Substance: DEXAMETHASONE
     Indication: Dermatitis atopic
     Route: 048

REACTIONS (2)
  - Cushing^s syndrome [Unknown]
  - Acarodermatitis [Unknown]
